FAERS Safety Report 11344106 (Version 2)
Quarter: 2015Q3

REPORT INFORMATION
  Report Type: Spontaneous
  Country: HK (occurrence: HK)
  Receive Date: 20150806
  Receipt Date: 20150806
  Transmission Date: 20151125
  Serious: Yes (Death, Other)
  Sender: FDA-Public Use
  Company Number: HK-ACTAVIS-2015-16130

PATIENT
  Age: 46 Year
  Sex: Female

DRUGS (9)
  1. PREDNISOLONE (UNKNOWN) [Suspect]
     Active Substance: PREDNISOLONE
     Dosage: 1 MG/KG, DAILY
     Route: 065
  2. CYCLOSPORINE (UNKNOWN) [Suspect]
     Active Substance: CYCLOSPORINE
     Indication: PARANEOPLASTIC PEMPHIGUS
     Dosage: 80 MG, BID, MORE THAN 12 WEEKS
     Route: 048
  3. PREDNISOLONE (UNKNOWN) [Suspect]
     Active Substance: PREDNISOLONE
     Indication: HEPATIC CANCER RECURRENT
     Dosage: UNK, 6 CYCLES
     Route: 065
  4. IMMUNOGLOBULIN                     /00025201/ [Concomitant]
     Active Substance: HUMAN IMMUNOGLOBULIN G
     Indication: PARANEOPLASTIC PEMPHIGUS
     Dosage: 1 MG/KG, TID
     Route: 042
  5. CLADRIBINE. [Suspect]
     Active Substance: CLADRIBINE
     Indication: HEPATIC CANCER RECURRENT
     Dosage: UNK, 2 CYCLES
     Route: 065
  6. CYCLOPHOSPHAMIDE (UNKNOWN) [Suspect]
     Active Substance: CYCLOPHOSPHAMIDE
     Indication: HEPATIC CANCER RECURRENT
     Dosage: UNK, 6 CYCLES
     Route: 065
  7. VINCRISTINE (UNKNOWN) [Suspect]
     Active Substance: VINCRISTINE
     Indication: HEPATIC CANCER RECURRENT
     Dosage: UNK,6 CCYLES
     Route: 065
  8. DOXORUBICIN (UNKNOWN) [Suspect]
     Active Substance: DOXORUBICIN
     Indication: HEPATIC CANCER RECURRENT
     Dosage: UNK, 6 CYCLES
     Route: 065
  9. RITUXIMAB [Suspect]
     Active Substance: RITUXIMAB
     Indication: PARANEOPLASTIC PEMPHIGUS
     Dosage: 375 MG/M2, 1/WEEK, MORE THAN 8WEEKS
     Route: 065

REACTIONS (1)
  - Pneumonia [Fatal]
